FAERS Safety Report 12929868 (Version 1)
Quarter: 2016Q4

REPORT INFORMATION
  Report Type: Spontaneous
  Country: US (occurrence: US)
  Receive Date: 20161110
  Receipt Date: 20161110
  Transmission Date: 20170207
  Serious: Yes (Other)
  Sender: FDA-Public Use
  Company Number: None

PATIENT
  Age: 76 Year
  Sex: Male
  Weight: 79.45 kg

DRUGS (1)
  1. SIMVASTATIN 40MG LUPIN [Suspect]
     Active Substance: SIMVASTATIN
     Indication: BLOOD CHOLESTEROL INCREASED
     Dosage: 12 YEARS HISTORY OF SIMVASTATIN
     Route: 048

REACTIONS (3)
  - Abdominal distension [None]
  - Unevaluable event [None]
  - Back pain [None]

NARRATIVE: CASE EVENT DATE: 20161103
